FAERS Safety Report 9289100 (Version 1)
Quarter: 2013Q2

REPORT INFORMATION
  Report Type: Spontaneous
  Country: BR (occurrence: BR)
  Receive Date: 20130514
  Receipt Date: 20130514
  Transmission Date: 20140414
  Serious: Yes (Other)
  Sender: FDA-Public Use
  Company Number: BR-AMGEN-BRASP2013033399

PATIENT
  Age: 53 Year
  Sex: Female
  Weight: 78 kg

DRUGS (9)
  1. ENBREL [Suspect]
     Indication: RHEUMATOID ARTHRITIS
     Dosage: 25 MG, 2X/WEEK
     Route: 058
     Dates: start: 200804
  2. METHOTREXATE [Concomitant]
     Dosage: 6 TABLETS ONCE WEEKLY
  3. METICORTEN [Concomitant]
     Dosage: UNK
  4. METFORMIN [Concomitant]
     Indication: DIABETES MELLITUS
     Dosage: 850 UNKNOWN UNIT UNKNOWN FREQUENCY
  5. GLIBENCLAMIDE [Concomitant]
     Indication: DIABETES MELLITUS
     Dosage: UNKNOWN ONCE DAILY
  6. ENALAPRIL [Concomitant]
     Dosage: UNK
  7. HYDROCHLOROTHIAZIDE [Concomitant]
     Indication: BLOOD PRESSURE
     Dosage: UNK
  8. OMEPRAZOLE [Concomitant]
     Indication: GASTRIC DISORDER
     Dosage: UNK
  9. RANITIDINE [Concomitant]
     Indication: GASTRIC DISORDER
     Dosage: UNK

REACTIONS (4)
  - Arthropathy [Unknown]
  - Hip deformity [Unknown]
  - Wound [Recovering/Resolving]
  - Pain [Not Recovered/Not Resolved]
